FAERS Safety Report 5051733-8 (Version None)
Quarter: 2006Q3

REPORT INFORMATION
  Report Type: 
  Country: None (occurrence: None)
  Receive Date: 20060712
  Receipt Date: 20060712
  Transmission Date: 20061208
  Serious: Yes (Life-Threatening, Hospitalization, Congenital Anomaly)
  Sender: FDA-Public Use
  Company Number: None

PATIENT
  Sex: Female
  Weight: 54.4316 kg

DRUGS (2)
  1. ZYPREXA [Suspect]
     Indication: DEPRESSION
  2. RISPERDAL [Suspect]
     Indication: PSYCHOTIC DISORDER
     Dosage: 50 MG SHOTS 3X IN 3 WEEKS
     Dates: start: 20060525, end: 20060621

REACTIONS (1)
  - MYOCARDIAL INFARCTION [None]
